FAERS Safety Report 8993364 (Version 2)
Quarter: 2013Q3

REPORT INFORMATION
  Report Type: Report from Study
  Country: US (occurrence: US)
  Receive Date: 20130102
  Receipt Date: 20130806
  Transmission Date: 20140515
  Serious: Yes (Other)
  Sender: FDA-Public Use
  Company Number: US-PFIZER INC-2012331267

PATIENT
  Sex: 0
  Weight: 2.62 kg

DRUGS (2)
  1. CISPLATIN [Suspect]
     Indication: OVARIAN CANCER
     Dosage: UNK
     Route: 064
  2. PACLITAXEL [Suspect]
     Indication: OVARIAN CANCER
     Dosage: UNK
     Route: 064

REACTIONS (7)
  - Maternal exposure timing unspecified [Unknown]
  - Hyperbilirubinaemia [Unknown]
  - Tourette^s disorder [Unknown]
  - Asperger^s disorder [Unknown]
  - Jaundice [Unknown]
  - Dyslexia [Unknown]
  - Speech disorder [Unknown]
